FAERS Safety Report 7148019-4 (Version None)
Quarter: 2010Q4

REPORT INFORMATION
  Report Type: 
  Country: None (occurrence: None)
  Receive Date: 20101209
  Receipt Date: 20101202
  Transmission Date: 20110411
  Serious: Yes (Other)
  Sender: FDA-Public Use
  Company Number: AU-EISAI INC.-E2020-05715-SPO-AU

PATIENT
  Sex: Male
  Weight: 110 kg

DRUGS (4)
  1. ARICEPT [Suspect]
     Indication: COGNITIVE DISORDER
     Route: 048
     Dates: start: 20090901, end: 20090101
  2. ARICEPT [Suspect]
     Route: 048
     Dates: start: 20090101, end: 20091101
  3. ARICEPT [Suspect]
     Route: 048
  4. FLUOXETINE [Concomitant]
     Indication: DEPRESSION
     Route: 048

REACTIONS (4)
  - BRADYCARDIA [None]
  - CARDIAC FAILURE [None]
  - MANIA [None]
  - OEDEMA [None]
